FAERS Safety Report 10377298 (Version 1)
Quarter: 2014Q3

REPORT INFORMATION
  Report Type: Spontaneous
  Country: US (occurrence: US)
  Receive Date: 20140812
  Receipt Date: 20140812
  Transmission Date: 20150326
  Serious: Yes (Hospitalization)
  Sender: FDA-Public Use
  Company Number: PHHY2014US095595

PATIENT
  Age: 58 Year
  Sex: Female

DRUGS (4)
  1. FLUTICASONE [Concomitant]
     Active Substance: FLUTICASONE\FLUTICASONE PROPIONATE
  2. CITALOPRAM [Concomitant]
     Active Substance: CITALOPRAM HYDROBROMIDE
  3. SIMVASTATIN. [Concomitant]
     Active Substance: SIMVASTATIN
  4. SALBUTAMOL [Suspect]
     Active Substance: ALBUTEROL
     Indication: ASTHMA
     Dosage: 90 UG, Q6H

REACTIONS (7)
  - Dyspnoea [Unknown]
  - Sinus tachycardia [Unknown]
  - Chest discomfort [Unknown]
  - Ejection fraction decreased [Unknown]
  - Acute pulmonary oedema [Unknown]
  - Stress cardiomyopathy [Unknown]
  - Orthopnoea [Unknown]
